FAERS Safety Report 4565064-3 (Version None)
Quarter: 2005Q1

REPORT INFORMATION
  Report Type: 
  Country: None (occurrence: None)
  Receive Date: 20050112
  Receipt Date: 20050112
  Transmission Date: 20050727
  Serious: Yes (Other)
  Sender: FDA-Public Use
  Company Number: None

PATIENT
  Age: 79 Year
  Sex: Female
  Weight: 63.5036 kg

DRUGS (2)
  1. ATENOLOL [Suspect]
     Indication: CORONARY ARTERY DISEASE
     Dosage: 1 PO DAILY
     Route: 048
     Dates: start: 20020101
  2. ATENOLOL [Suspect]
     Indication: HYPERTENSION
     Dosage: 1 PO DAILY
     Route: 048
     Dates: start: 20020101

REACTIONS (1)
  - RASH [None]
